FAERS Safety Report 10613883 (Version 5)
Quarter: 2016Q1

REPORT INFORMATION
  Report Type: Spontaneous
  Country: FR (occurrence: FR)
  Receive Date: 20141128
  Receipt Date: 20160113
  Transmission Date: 20160525
  Serious: Yes (Hospitalization)
  Sender: FDA-Public Use
  Company Number: FR-PFIZER INC-2014322901

PATIENT
  Age: 13 Year
  Sex: Female

DRUGS (12)
  1. TAZOCILLINE [Suspect]
     Active Substance: PIPERACILLIN SODIUM\TAZOBACTAM SODIUM
     Indication: FEBRILE BONE MARROW APLASIA
     Dosage: 3600 MG, 4X/DAY
     Route: 042
     Dates: start: 20141101, end: 20141114
  2. CANCIDAS [Suspect]
     Active Substance: CASPOFUNGIN ACETATE
     Indication: FEBRILE BONE MARROW APLASIA
     Dosage: 70 MG, DAILY
     Route: 042
     Dates: start: 20141111
  3. AMIKACIN /00391002/ [Suspect]
     Active Substance: AMIKACIN
     Indication: FEBRILE BONE MARROW APLASIA
     Dosage: 150 MG, DAILY
     Route: 042
     Dates: start: 20141031
  4. LUTERAN [Concomitant]
     Active Substance: CHLORMADINONE ACETATE
     Indication: DRUG THERAPY
     Dosage: 10 MG, DAILY
  5. VANCOMYCIN HCL [Suspect]
     Active Substance: VANCOMYCIN HYDROCHLORIDE
     Indication: FEBRILE BONE MARROW APLASIA
     Dosage: 1.5 G, DAILY
     Route: 042
     Dates: start: 20141103, end: 20141113
  6. MOPRAL /00661201/ [Concomitant]
     Active Substance: OMEPRAZOLE SODIUM
     Indication: DRUG THERAPY
     Dosage: 20 MG, 1X/DAY
  7. CANCIDAS [Suspect]
     Active Substance: CASPOFUNGIN ACETATE
     Dosage: 50 MG, DAILY
     Route: 042
     Dates: end: 20141114
  8. PROVAMES [Concomitant]
     Active Substance: ESTRADIOL
     Indication: DRUG THERAPY
     Dosage: 1 MG, 1X/DAY
  9. AMIKACIN /00391002/ [Suspect]
     Active Substance: AMIKACIN
     Dosage: 700 MG, DAILY
     Route: 042
     Dates: start: 20141112, end: 20141114
  10. TIENAM [Suspect]
     Active Substance: CILASTATIN SODIUM\IMIPENEM
     Indication: FEBRILE BONE MARROW APLASIA
     Dosage: 500 MG, 4X/DAY
     Route: 042
     Dates: start: 20141112, end: 20141114
  11. BACTRIM [Concomitant]
     Active Substance: SULFAMETHOXAZOLE\TRIMETHOPRIM
     Indication: DRUG THERAPY
     Dosage: 800 MG, 3X/WEEK
  12. PARACETAMOL [Concomitant]
     Active Substance: ACETAMINOPHEN
     Indication: PAIN
     Dosage: 500 MG IN CASE OF PAIN

REACTIONS (3)
  - Tachycardia [Recovered/Resolved]
  - Toxic skin eruption [Recovered/Resolved]
  - Hypotension [Recovered/Resolved]

NARRATIVE: CASE EVENT DATE: 201411
